FAERS Safety Report 14929676 (Version 1)
Quarter: 2018Q2

REPORT INFORMATION
  Report Type: Spontaneous
  Country: NL (occurrence: NL)
  Receive Date: 20180523
  Receipt Date: 20180523
  Transmission Date: 20180711
  Serious: Yes (Hospitalization)
  Sender: FDA-Public Use
  Company Number: NL-PFIZER INC-2018206398

PATIENT

DRUGS (5)
  1. BEVACIZUMAB. [Suspect]
     Active Substance: BEVACIZUMAB
     Indication: COLORECTAL CANCER
     Dosage: 5 MG/M2 (THE DATE OF LAST DOSE WAS 07/JUN/2016  PRIOR TO AE)
     Route: 042
     Dates: start: 20160607, end: 20160607
  2. 5-FLUOROURACIL [Suspect]
     Active Substance: FLUOROURACIL
     Indication: COLORECTAL CANCER
     Dosage: 3200 MG/M2 (THE DATE OF LAST DOSE WAS  08/JUN/2016  PRIOR TO AE)
     Route: 042
     Dates: start: 20160607, end: 20160608
  3. IRINOTECAN HCL [Suspect]
     Active Substance: IRINOTECAN HYDROCHLORIDE
     Indication: COLORECTAL CANCER
     Dosage: 165 MG/M2 (THE DATE OF LAST DOSE WAS07/JUN/2016  PRIOR TO AE)
     Route: 042
     Dates: start: 20160607, end: 20160607
  4. OXALIPLATIN. [Suspect]
     Active Substance: OXALIPLATIN
     Indication: COLORECTAL CANCER
     Dosage: 85 MG/M2 (THE DATE OF LAST DOSE WAS  07/JUN/2016  PRIOR TO AE)
     Route: 042
     Dates: start: 20160607, end: 20160607
  5. LEUCOVORIN. [Suspect]
     Active Substance: LEUCOVORIN
     Indication: COLORECTAL CANCER
     Dosage: 400 MG/M2 (THE DATE OF LAST DOSE WAS  07/JUN/2016  PRIOR TO AE)
     Route: 042
     Dates: start: 20160607, end: 20160607

REACTIONS (3)
  - Diarrhoea [Recovered/Resolved]
  - Pyrexia [Recovered/Resolved]
  - Tumour lysis syndrome [Recovered/Resolved]

NARRATIVE: CASE EVENT DATE: 20160620
